FAERS Safety Report 6752699-2 (Version None)
Quarter: 2010Q2

REPORT INFORMATION
  Report Type: 
  Country: None (occurrence: None)
  Receive Date: 20100528
  Receipt Date: 20100518
  Transmission Date: 20101027
  Serious: Yes (Other)
  Sender: FDA-Public Use
  Company Number: 20108526

PATIENT
  Sex: Male

DRUGS (1)
  1. LIORESAL [Suspect]
     Indication: MUSCLE SPASTICITY
     Dosage: 65 MCG, DAILY, INTRATHECAL
     Route: 037

REACTIONS (7)
  - DEVICE FAILURE [None]
  - GRANULOMA [None]
  - INCORRECT DOSE ADMINISTERED BY DEVICE [None]
  - INFUSION SITE MASS [None]
  - MEDICAL DEVICE COMPLICATION [None]
  - MUSCLE SPASTICITY [None]
  - MUSCULAR WEAKNESS [None]
